FAERS Safety Report 8281985-2 (Version None)
Quarter: 2012Q2

REPORT INFORMATION
  Report Type: 
  Country: None (occurrence: None)
  Receive Date: 20120410
  Receipt Date: 20120327
  Transmission Date: 20120825
  Serious: Yes (Life-Threatening, Hospitalization, Other)
  Sender: FDA-Public Use
  Company Number: 20120170

PATIENT
  Age: 17 Year
  Sex: Male

DRUGS (1)
  1. EPINEPHRINE [Suspect]
     Indication: INTRAOPERATIVE CARE
     Dosage: 3.3 MG/L IN SALINE

REACTIONS (4)
  - RESPIRATORY DISTRESS [None]
  - POSTERIOR REVERSIBLE ENCEPHALOPATHY SYNDROME [None]
  - SINUS TACHYCARDIA [None]
  - HYPERTENSION [None]
